FAERS Safety Report 7816732-9 (Version None)
Quarter: 2011Q4

REPORT INFORMATION
  Report Type: 
  Country: None (occurrence: None)
  Receive Date: 20111017
  Receipt Date: 20111012
  Transmission Date: 20120403
  Serious: Yes (Other)
  Sender: FDA-Public Use
  Company Number: US-NAPPMUNDI-USA-2011-0063035

PATIENT
  Sex: Female

DRUGS (2)
  1. OXYCONTIN [Suspect]
     Dosage: 10 MG, Q12H
     Route: 048
  2. OXYCONTIN [Suspect]
     Indication: PAIN
     Dosage: 40 MG, Q12H
     Route: 048

REACTIONS (6)
  - CHOLECYSTECTOMY [None]
  - VOMITING [None]
  - ABDOMINAL DISCOMFORT [None]
  - RETCHING [None]
  - CONSTIPATION [None]
  - DYSPEPSIA [None]
